FAERS Safety Report 6432922-4 (Version None)
Quarter: 2009Q4

REPORT INFORMATION
  Report Type: 
  Country: None (occurrence: None)
  Receive Date: 20091109
  Receipt Date: 20091103
  Transmission Date: 20100525
  Serious: Yes (Life-Threatening)
  Sender: FDA-Public Use
  Company Number: GB-MERCK-0911GBR00022

PATIENT
  Age: 69 Year
  Sex: Female
  Weight: 95 kg

DRUGS (7)
  1. JANUVIA [Suspect]
     Indication: DIABETES MELLITUS
     Route: 048
     Dates: start: 20091017, end: 20091021
  2. AMITRIPTYLINE HYDROCHLORIDE [Concomitant]
     Route: 065
  3. ASPIRIN [Concomitant]
     Route: 065
  4. ENALAPRIL MALEATE [Concomitant]
     Route: 065
  5. LEVOTHYROXINE SODIUM [Concomitant]
     Route: 065
  6. METFORMIN [Concomitant]
     Route: 065
  7. SIMVASTATIN [Concomitant]
     Route: 065

REACTIONS (2)
  - CHEST PAIN [None]
  - MYOCARDIAL INFARCTION [None]
